FAERS Safety Report 21291755 (Version 1)
Quarter: 2022Q3

REPORT INFORMATION
  Report Type: Report from Study
  Country: CA (occurrence: CA)
  Receive Date: 20220903
  Receipt Date: 20220903
  Transmission Date: 20221027
  Serious: Yes (Other)
  Sender: FDA-Public Use
  Company Number: CA-ABBVIE-22K-028-4254942-00

PATIENT
  Age: 35 Year
  Sex: Female

DRUGS (1)
  1. HUMIRA [Suspect]
     Active Substance: ADALIMUMAB
     Indication: Product used for unknown indication
     Route: 058
     Dates: start: 20220125, end: 202208

REACTIONS (15)
  - Skin lesion [Recovering/Resolving]
  - Skin discharge [Recovering/Resolving]
  - Gait disturbance [Recovering/Resolving]
  - Haemorrhage [Unknown]
  - Constipation [Unknown]
  - Procedural pain [Unknown]
  - Chills [Unknown]
  - Pain [Unknown]
  - Discomfort [Not Recovered/Not Resolved]
  - Injection site swelling [Unknown]
  - Erythema [Recovering/Resolving]
  - Breast pain [Recovering/Resolving]
  - Rash [Recovering/Resolving]
  - Purulent discharge [Unknown]
  - Pyrexia [Unknown]

NARRATIVE: CASE EVENT DATE: 20220101
